FAERS Safety Report 5500746-8 (Version None)
Quarter: 2007Q4

REPORT INFORMATION
  Report Type: 
  Country: None (occurrence: None)
  Receive Date: 20071019
  Receipt Date: 20070828
  Transmission Date: 20080405
  Serious: Yes (Other)
  Sender: FDA-Public Use
  Company Number: HQWYE928630AUG07

PATIENT
  Age: 77 Year
  Sex: Female
  Weight: 72.64 kg

DRUGS (2)
  1. ADVIL PM [Suspect]
     Indication: ANALGESIA
     Dosage: 2 CAPSULES AT BED TIME, ORAL
     Route: 048
     Dates: start: 20070818, end: 20070820
  2. ADVIL PM [Suspect]
     Indication: INSOMNIA
     Dosage: 2 CAPSULES AT BED TIME, ORAL
     Route: 048
     Dates: start: 20070818, end: 20070820

REACTIONS (1)
  - DYSPHAGIA [None]
